FAERS Safety Report 7613108-4 (Version None)
Quarter: 2011Q3

REPORT INFORMATION
  Report Type: 
  Country: None (occurrence: None)
  Receive Date: 20110708
  Receipt Date: 20110628
  Transmission Date: 20111222
  Serious: Yes (Hospitalization)
  Sender: FDA-Public Use
  Company Number: 1000021683

PATIENT
  Age: 23 Year
  Sex: Female

DRUGS (7)
  1. ESCITALOPRAM [Suspect]
     Indication: NEUROSIS
     Dosage: 5 MG (5 MG,1 IN 1 D),ORAL
     Route: 048
  2. ATARAX (HYDROXYZINE) (TABLETS) (HYROXYZINE) [Concomitant]
  3. THERALEN ORAL DROPS (ALIMEMAZINE TARTRATE) (DROPS(FOR ORAL USE)) (ALIM [Concomitant]
  4. MIRTAZAPINE [Suspect]
     Indication: NEUROSIS
     Dosage: 15 MG (15 MG,1 IN 1 D),ORAL
     Route: 048
  5. DIKLOFENAK (DICLOFENAC SODIUM) (TABLETS) (DICLOFENAC SODIUM) [Concomitant]
  6. PANODIL FORTE (PARACETAMOL) (PARACETAMOL) [Concomitant]
  7. PANOCOD (ACETAMINOPHEN, CODEINE PHOSPHATE) (TABLETS) (ACETAMINOPHEN, C [Concomitant]

REACTIONS (4)
  - CONVULSION [None]
  - ANXIETY [None]
  - CONDITION AGGRAVATED [None]
  - ROAD TRAFFIC ACCIDENT [None]
